FAERS Safety Report 6146486-6 (Version None)
Quarter: 2009Q2

REPORT INFORMATION
  Report Type: 
  Country: None (occurrence: None)
  Receive Date: 20090407
  Receipt Date: 20090402
  Transmission Date: 20091009
  Serious: Yes (Hospitalization)
  Sender: FDA-Public Use
  Company Number: B0565418A

PATIENT
  Sex: Female

DRUGS (1)
  1. LAMICTAL [Suspect]
     Indication: BIPOLAR I DISORDER
     Route: 048
     Dates: start: 20090120, end: 20090312

REACTIONS (3)
  - ABDOMINAL PAIN [None]
  - ANAEMIA [None]
  - OVARIAN HAEMORRHAGE [None]
